FAERS Safety Report 7443701-3 (Version None)
Quarter: 2011Q2

REPORT INFORMATION
  Report Type: 
  Country: None (occurrence: None)
  Receive Date: 20110428
  Receipt Date: 20110425
  Transmission Date: 20111010
  Serious: No
  Sender: FDA-Public Use
  Company Number: US-TEVA-278371USA

PATIENT
  Sex: Female
  Weight: 56.75 kg

DRUGS (3)
  1. PLAN B ONE-STEP [Suspect]
     Dosage: 1.5 MILLIGRAM;
     Route: 048
     Dates: start: 20110327, end: 20110327
  2. PLAN B ONE-STEP [Suspect]
     Indication: POST COITAL CONTRACEPTION
     Dosage: 1.5 MILLIGRAM;
     Route: 048
     Dates: start: 20110320, end: 20110320
  3. CLONAZEPAM [Concomitant]
     Indication: ANXIETY
     Route: 048

REACTIONS (9)
  - MENSTRUATION DELAYED [None]
  - FEELING HOT [None]
  - BREAST PAIN [None]
  - BREAST SWELLING [None]
  - MENSTRUATION IRREGULAR [None]
  - NAUSEA [None]
  - DECREASED APPETITE [None]
  - PELVIC PAIN [None]
  - VOMITING [None]
